FAERS Safety Report 18521941 (Version 1)
Quarter: 2020Q4

REPORT INFORMATION
  Report Type: Spontaneous
  Country: DE (occurrence: DE)
  Receive Date: 20201119
  Receipt Date: 20201119
  Transmission Date: 20210114
  Serious: Yes (Other)
  Sender: FDA-Public Use
  Company Number: NVSC2020DE305769

PATIENT
  Age: 52 Year
  Sex: Female

DRUGS (1)
  1. LETROZOLE. [Suspect]
     Active Substance: LETROZOLE
     Indication: BREAST CANCER
     Dosage: UNK
     Route: 065
     Dates: start: 201803, end: 201810

REACTIONS (4)
  - Metastases to liver [Unknown]
  - Back pain [Unknown]
  - Device related infection [Unknown]
  - Metastases to bone [Unknown]

NARRATIVE: CASE EVENT DATE: 201809
